FAERS Safety Report 5329098-3 (Version None)
Quarter: 2007Q2

REPORT INFORMATION
  Report Type: 
  Country: None (occurrence: None)
  Receive Date: 20070518
  Receipt Date: 20070507
  Transmission Date: 20071010
  Serious: Yes (Death, Hospitalization, Other)
  Sender: FDA-Public Use
  Company Number: US-PFIZER INC-2006146754

PATIENT
  Sex: Female
  Weight: 54.4 kg

DRUGS (3)
  1. CELEBREX [Suspect]
     Indication: PAIN
     Route: 048
  2. BEXTRA [Suspect]
     Indication: PAIN
     Route: 048
  3. VIOXX [Suspect]
     Route: 048

REACTIONS (2)
  - CARDIOVASCULAR DISORDER [None]
  - PULMONARY EMBOLISM [None]
